FAERS Safety Report 20895166 (Version 2)
Quarter: 2022Q3

REPORT INFORMATION
  Report Type: Report from Study
  Country: BR (occurrence: BR)
  Receive Date: 20220531
  Receipt Date: 20220715
  Transmission Date: 20221027
  Serious: Yes (Other)
  Sender: FDA-Public Use
  Company Number: BR-ABBVIE-22K-020-4414783-00

PATIENT
  Age: 70 Year
  Sex: Female
  Weight: 78 kg

DRUGS (2)
  1. SKYRIZI [Suspect]
     Active Substance: RISANKIZUMAB-RZAA
     Indication: Psoriasis
     Route: 058
     Dates: start: 20211119
  2. INFLUENZA VIRUS VACCINE [Suspect]
     Active Substance: INFLUENZA VIRUS VACCINE
     Indication: Product used for unknown indication
     Route: 065

REACTIONS (9)
  - Hepatitis [Unknown]
  - Influenza [Recovered/Resolved]
  - Scab [Not Recovered/Not Resolved]
  - Incorrect route of product administration [Unknown]
  - Muscle spasms [Recovering/Resolving]
  - Liver disorder [Recovering/Resolving]
  - Dysgeusia [Recovering/Resolving]
  - Psoriasis [Not Recovered/Not Resolved]
  - Injection site pain [Unknown]

NARRATIVE: CASE EVENT DATE: 20220401
